FAERS Safety Report 4295706-1 (Version None)
Quarter: 2004Q1

REPORT INFORMATION
  Report Type: 
  Country: None (occurrence: None)
  Receive Date: 20040216
  Receipt Date: 20040203
  Transmission Date: 20041129
  Serious: Yes (Other)
  Sender: FDA-Public Use
  Company Number: IT-GLAXOSMITHKLINE-B0322324A

PATIENT
  Age: 11 Year
  Sex: Female

DRUGS (4)
  1. ZIDOVUDINE [Suspect]
     Route: 065
     Dates: start: 19960213
  2. LAMIVUDINE + ZIDOVUDINE [Suspect]
     Route: 065
     Dates: start: 19970715, end: 19980101
  3. DIDANOSINE [Concomitant]
     Dates: start: 19970527
  4. DIDANOSINE [Concomitant]
     Route: 065
     Dates: start: 19960213

REACTIONS (1)
  - CONGESTIVE CARDIOMYOPATHY [None]
